FAERS Safety Report 18342567 (Version 3)
Quarter: 2021Q1

REPORT INFORMATION
  Report Type: Report from Study
  Country: AU (occurrence: AU)
  Receive Date: 20201005
  Receipt Date: 20210208
  Transmission Date: 20210419
  Serious: Yes (Disabling, Other)
  Sender: FDA-Public Use
  Company Number: AU-AMGEN-AUSSL2020158872

PATIENT
  Age: 63 Year
  Sex: Male

DRUGS (4)
  1. DEXAMETHASONE. [Concomitant]
     Active Substance: DEXAMETHASONE
     Indication: PLASMA CELL MYELOMA
     Dosage: UNK
  2. KYPROLIS [Suspect]
     Active Substance: CARFILZOMIB
     Indication: PLASMA CELL MYELOMA
     Dosage: 120 MILLIGRAM, DAY 1, 8, 15 (28DAYS PER CYCLE)
     Route: 042
     Dates: start: 20191105
  3. KYPROLIS [Suspect]
     Active Substance: CARFILZOMIB
     Dosage: 96 MILLIGRAM, CYCLE 13, DAY 8
     Route: 042
     Dates: start: 20200929
  4. KYPROLIS [Suspect]
     Active Substance: CARFILZOMIB
     Dosage: 78 MILLIGRAM,  DAY1, 8 + 15, 28DAYS PER CYCLE
     Route: 042
     Dates: start: 202011

REACTIONS (7)
  - Toxicity to various agents [Recovered/Resolved]
  - Gingivitis [Not Recovered/Not Resolved]
  - Malaise [Not Recovered/Not Resolved]
  - Pain [Not Recovered/Not Resolved]
  - Fatigue [Not Recovered/Not Resolved]
  - Tooth infection [Not Recovered/Not Resolved]
  - Dental caries [Not Recovered/Not Resolved]

NARRATIVE: CASE EVENT DATE: 20200929
